FAERS Safety Report 5099575-1 (Version None)
Quarter: 2006Q3

REPORT INFORMATION
  Report Type: 
  Country: None (occurrence: None)
  Receive Date: 20060908
  Receipt Date: 20060830
  Transmission Date: 20061208
  Serious: Yes (Death, Other)
  Sender: FDA-Public Use
  Company Number: JP-JNJFOC-20050901788

PATIENT
  Age: 72 Year
  Sex: Male

DRUGS (5)
  1. LEUSTATIN [Suspect]
     Dosage: 0.09 MG/KG FOR 7 DAYS
     Route: 042
  2. LEUSTATIN [Suspect]
     Dosage: 0.09 MG/KG FOR 7 DAYS
     Route: 042
  3. LEUSTATIN [Suspect]
     Dosage: 0.09 MG/KG FOR 7 DAYS
     Route: 042
  4. LEUSTATIN [Suspect]
     Dosage: 0.09 MG/KG FOR 7 DAYS
     Route: 042
  5. LEUSTATIN [Suspect]
     Indication: B-CELL LYMPHOMA
     Dosage: 0.09 MG/KG FOR 7 DAYS
     Route: 042

REACTIONS (2)
  - BONE MARROW FAILURE [None]
  - PNEUMONITIS CRYPTOCOCCAL [None]
